FAERS Safety Report 9083237 (Version 1)
Quarter: 2013Q1

REPORT INFORMATION
  Report Type: Report from Study
  Country: US (occurrence: US)
  Receive Date: 20130130
  Receipt Date: 20130130
  Transmission Date: 20140127
  Serious: No
  Sender: FDA-Public Use
  Company Number: US-ABBOTT-12P-163-0941969-00

PATIENT
  Age: 45 Year
  Sex: Female

DRUGS (11)
  1. HUMIRA 40 MG/0.8 ML PEN [Suspect]
     Indication: ANKYLOSING SPONDYLITIS
     Dates: end: 20120711
  2. NIASPAN [Concomitant]
     Indication: BLOOD CHOLESTEROL
     Dosage: DAILY
     Route: 048
  3. SIMVASTATIN [Concomitant]
     Indication: BLOOD CHOLESTEROL
     Dosage: 10MG DAILY
     Route: 048
  4. SPIRONOLACTONE [Concomitant]
     Indication: DYSKINESIA
     Dosage: 75MG DAILY
  5. BABY ASPIRIN [Concomitant]
     Indication: BLOOD CHOLESTEROL
     Dosage: 81MG DAILY
     Route: 048
  6. FISH OIL [Concomitant]
     Indication: BLOOD CHOLESTEROL
     Dosage: 3000 UNITS DAILY
     Route: 048
  7. GLUCOSAMINE + CHONDROITIN [Concomitant]
     Indication: ARTHRALGIA
     Dosage: 1500/1200MG DAILY
  8. CALCIUM [Concomitant]
     Indication: SUPPLEMENTATION THERAPY
     Dosage: 1500MG DAILY
     Route: 048
  9. LORATADINE [Concomitant]
     Indication: HYPERSENSITIVITY
     Dosage: 10MG DAILY
     Route: 048
  10. PRILOSEC [Concomitant]
     Indication: GASTRIC DISORDER
     Route: 048
  11. IBUPROFEN [Concomitant]
     Indication: PAIN
     Dosage: AS NEEDED

REACTIONS (2)
  - Urticaria [Not Recovered/Not Resolved]
  - Injection site urticaria [Not Recovered/Not Resolved]
